FAERS Safety Report 8187067-2 (Version None)
Quarter: 2012Q1

REPORT INFORMATION
  Report Type: 
  Country: None (occurrence: None)
  Receive Date: 20120306
  Receipt Date: 20120229
  Transmission Date: 20120608
  Serious: No
  Sender: FDA-Public Use
  Company Number: US-BAYER-2012-021315

PATIENT
  Sex: Female

DRUGS (4)
  1. ALEVE (CAPLET) [Suspect]
     Indication: DYSMENORRHOEA
     Route: 048
  2. ASPIRIN [Suspect]
     Indication: DYSMENORRHOEA
     Route: 048
  3. PAMPRIN TAB [Concomitant]
  4. IBUPROFEN TABLETS [Concomitant]

REACTIONS (1)
  - DYSMENORRHOEA [None]
